FAERS Safety Report 7904630-1 (Version None)
Quarter: 2011Q4

REPORT INFORMATION
  Report Type: 
  Country: None (occurrence: None)
  Receive Date: 20111109
  Receipt Date: 20111108
  Transmission Date: 20120403
  Serious: Yes (Hospitalization, Other)
  Sender: FDA-Public Use
  Company Number: US-GLAXOSMITHKLINE-A0943044A

PATIENT
  Age: 67 Year
  Sex: Male

DRUGS (1)
  1. AVANDIA [Suspect]
     Indication: DIABETES MELLITUS
     Dosage: 4MG PER DAY
     Route: 048
     Dates: start: 20021001, end: 20050201

REACTIONS (9)
  - DEPRESSION [None]
  - WEIGHT DECREASED [None]
  - DYSPNOEA [None]
  - CORONARY ARTERY BYPASS [None]
  - CORONARY ARTERY DISEASE [None]
  - STENT PLACEMENT [None]
  - FLUID RETENTION [None]
  - DECREASED APPETITE [None]
  - OXYGEN SUPPLEMENTATION [None]
